FAERS Safety Report 24917308 (Version 1)
Quarter: 2025Q1

REPORT INFORMATION
  Report Type: Spontaneous
  Country: US (occurrence: None)
  Receive Date: 20250202
  Receipt Date: 20250202
  Transmission Date: 20250409
  Serious: Yes (unspecified)
  Sender: FDA-CTU
  Company Number: None

PATIENT
  Age: 47 Year
  Sex: Male
  Weight: 187.6 kg

DRUGS (2)
  1. HYDROMORPHONE [Suspect]
     Active Substance: HYDROMORPHONE
     Indication: Fracture pain
     Route: 042
     Dates: start: 20250115, end: 20250115
  2. FENTANYL [Suspect]
     Active Substance: FENTANYL
     Dates: start: 20250115, end: 20250115

REACTIONS (2)
  - Respiratory rate decreased [None]
  - Oxygen saturation decreased [None]

NARRATIVE: CASE EVENT DATE: 20250115
